FAERS Safety Report 6559606-6 (Version None)
Quarter: 2010Q1

REPORT INFORMATION
  Report Type: 
  Country: None (occurrence: None)
  Receive Date: 20100129
  Receipt Date: 20090903
  Transmission Date: 20100710
  Serious: No
  Sender: FDA-Public Use
  Company Number: US-ABBOTT-09P-163-0595317-00

PATIENT
  Sex: Female
  Weight: 76.272 kg

DRUGS (2)
  1. HUMIRA [Suspect]
     Indication: PSORIASIS
     Dates: start: 20090206
  2. CORTISPORIN [Concomitant]
     Indication: PAIN
     Dosage: EAR GTTS AND ANOTHER GTT FOR PAIN, BUT CANNOT RECALL NAME OF MEDICINE

REACTIONS (3)
  - EAR INFECTION [None]
  - PSORIASIS [None]
  - WEIGHT INCREASED [None]
